FAERS Safety Report 6205959-8 (Version None)
Quarter: 2009Q2

REPORT INFORMATION
  Report Type: 
  Country: None (occurrence: None)
  Receive Date: 20090527
  Receipt Date: 20090527
  Transmission Date: 20091009
  Serious: Yes (Other)
  Sender: FDA-Public Use
  Company Number: None

PATIENT
  Age: 37 Year
  Sex: Male
  Weight: 120.2032 kg

DRUGS (23)
  1. LYRICA [Suspect]
     Indication: NEUROPATHY PERIPHERAL
     Dosage: 150 MG PO BID
     Route: 048
     Dates: start: 20090218, end: 20090402
  2. ACETAMINOPHEN [Concomitant]
  3. ACYCLOVIR [Concomitant]
  4. BISACODYL [Concomitant]
  5. CEPHALEXIN [Concomitant]
  6. CHLORPROMAZINE [Concomitant]
  7. CLONAZEPAM [Concomitant]
  8. DIVALPROEX SODIUM [Concomitant]
  9. EZETIMIBE [Concomitant]
  10. FLUPHENAZINE [Concomitant]
  11. GUAIFENESIN [Concomitant]
  12. HYDROXYZINE [Concomitant]
  13. LITHIUM CARBONATE [Concomitant]
  14. LORAZEPAM [Concomitant]
  15. ANTACID SUSPENSION [Concomitant]
  16. MIRALAX [Concomitant]
  17. NAPROXEN [Concomitant]
  18. PREDNISONE [Concomitant]
  19. PROPRANOLOL HYDROCHLORIDE [Concomitant]
  20. QUETIAPINE FUMARATE [Concomitant]
  21. SENNOSIDES [Concomitant]
  22. THIAMINE HCL [Concomitant]
  23. ZOLPIDEM TARTRATE [Concomitant]

REACTIONS (3)
  - COUGH [None]
  - DYSPHAGIA [None]
  - OEDEMA PERIPHERAL [None]
